FAERS Safety Report 8613505-4 (Version None)
Quarter: 2012Q3

REPORT INFORMATION
  Report Type: 
  Country: None (occurrence: None)
  Receive Date: 20120823
  Receipt Date: 20120807
  Transmission Date: 20120928
  Serious: Yes (Other)
  Sender: FDA-Public Use
  Company Number: US-009507513-1208USA000488

PATIENT

DRUGS (13)
  1. ESCITALOPRAM OXALATE [Concomitant]
     Dosage: UNK, QD
     Route: 048
  2. TIZANIDINE HYDROCHLORIDE [Concomitant]
     Dosage: 3 DF, QD (PM)
     Route: 048
  3. TYLENOL [Concomitant]
     Route: 048
  4. FLECTOR [Concomitant]
     Dosage: 1 DF, QD
     Route: 062
  5. HYDROXYZINE HYDROCHLORIDE [Concomitant]
     Indication: PRURITUS
     Dosage: 1 DF, 2-3 TIMES DAILY AS NEEDED
  6. IBUPROFEN [Concomitant]
     Dosage: 2 DF, QD (AM)
     Route: 048
  7. ALEVE [Concomitant]
     Dosage: UNK, QD (PM)
     Route: 048
  8. FLEXERIL [Concomitant]
     Dosage: 10 MG, QD
     Route: 048
  9. PEG-INTRON [Suspect]
     Indication: HEPATITIS C
     Dosage: 120 MICROGRAM, QW
     Route: 058
     Dates: start: 20120118
  10. OMEPRAZOLE [Concomitant]
     Dosage: 20 MG, QD
     Route: 048
  11. RIBASPHERE [Suspect]
     Dosage: 600MG AM AND 400MG PM
     Dates: start: 20120118
  12. TELAPREVIR [Suspect]
     Dosage: UNK
     Dates: start: 20120201, end: 20120101
  13. CLARITIN [Concomitant]
     Indication: PRURITUS
     Dosage: 1 TO 2 PER DAY

REACTIONS (15)
  - FALL [None]
  - DYSPEPSIA [None]
  - INTERVERTEBRAL DISC PROTRUSION [None]
  - DIVERTICULUM INTESTINAL [None]
  - ANAEMIA [None]
  - COLONIC POLYP [None]
  - ABDOMINAL PAIN [None]
  - SPINAL FUSION SURGERY [None]
  - RASH [None]
  - DEPRESSION [None]
  - LEUKOPENIA [None]
  - OSTEOARTHRITIS [None]
  - PAIN [None]
  - FATIGUE [None]
  - IRON DEFICIENCY ANAEMIA [None]
